FAERS Safety Report 18254983 (Version 2)
Quarter: 2020Q3

REPORT INFORMATION
  Report Type: Spontaneous
  Country: PT (occurrence: PT)
  Receive Date: 20200911
  Receipt Date: 20200918
  Transmission Date: 20201103
  Serious: Yes (Disabling)
  Sender: FDA-Public Use
  Company Number: PT-AUROBINDO-AUR-APL-2020-046981

PATIENT
  Age: 38 Year
  Sex: Male

DRUGS (2)
  1. FINASTERIDE GENERIS PHAR FILM?COATED TABLETS [Suspect]
     Active Substance: FINASTERIDE
     Indication: ANDROGENETIC ALOPECIA
     Dosage: 1 MILLIGRAM, ONCE A DAY (HE TOOK 4 PILLS AND SUSPENDED)
     Route: 048
     Dates: start: 20200825, end: 20200829
  2. MINOXIDIL BIORGA [Concomitant]
     Indication: ANDROGENETIC ALOPECIA
     Dosage: UNK
     Route: 003

REACTIONS (2)
  - Back pain [Recovered/Resolved]
  - Testicular pain [Recovered/Resolved]

NARRATIVE: CASE EVENT DATE: 20200825
